FAERS Safety Report 9918115 (Version 1)
Quarter: 2014Q1

REPORT INFORMATION
  Report Type: Spontaneous
  Country: LB (occurrence: LB)
  Receive Date: 20140223
  Receipt Date: 20140223
  Transmission Date: 20141002
  Serious: No
  Sender: FDA-Public Use
  Company Number: LB-ALLERGAN-1400568US

PATIENT
  Age: 33 Year
  Sex: Female

DRUGS (4)
  1. ZORAC 0,1% [Suspect]
     Indication: ACNE
     Dosage: 1 APPLICATION AT NIGHT
     Route: 061
  2. ZORAC 0,1% [Suspect]
     Indication: SKIN HYPOPIGMENTATION
  3. ZORAC 0,1% [Suspect]
     Indication: SKIN EXFOLIATION
  4. ELDOQUIN [Concomitant]

REACTIONS (1)
  - Exposure during pregnancy [Unknown]
